FAERS Safety Report 15771983 (Version 4)
Quarter: 2019Q2

REPORT INFORMATION
  Report Type: Spontaneous
  Country: US (occurrence: US)
  Receive Date: 20181228
  Receipt Date: 20190401
  Transmission Date: 20190711
  Serious: Yes (Hospitalization)
  Sender: FDA-Public Use
  Company Number: US-SA-2018SA393929

PATIENT
  Age: 64 Year
  Sex: Female

DRUGS (3)
  1. CRESTOR [Suspect]
     Active Substance: ROSUVASTATIN CALCIUM
     Dosage: 0.5 DF
     Dates: start: 201812, end: 201812
  2. PRALUENT [Suspect]
     Active Substance: ALIROCUMAB
     Indication: HYPERLIPIDAEMIA
  3. PRALUENT [Suspect]
     Active Substance: ALIROCUMAB
     Indication: HYPERCHOLESTEROLAEMIA
     Dosage: 75 MG, QOW
     Route: 058
     Dates: start: 20181203, end: 20181217

REACTIONS (19)
  - Inflammation [Unknown]
  - Gait disturbance [Unknown]
  - Influenza [Unknown]
  - Pyrexia [Unknown]
  - Joint swelling [Unknown]
  - Fatigue [Recovered/Resolved]
  - Arthritis [Unknown]
  - Palpitations [Recovered/Resolved]
  - Pain [Unknown]
  - Feeling hot [Recovered/Resolved]
  - Hot flush [Recovered/Resolved]
  - Back pain [Unknown]
  - Blood test abnormal [Not Recovered/Not Resolved]
  - Nausea [Recovered/Resolved]
  - Joint injury [Unknown]
  - Condition aggravated [Recovered/Resolved]
  - Feeling abnormal [Recovered/Resolved]
  - Productive cough [Recovered/Resolved]
  - Oropharyngeal discomfort [Unknown]

NARRATIVE: CASE EVENT DATE: 201812
